FAERS Safety Report 5273405-7 (Version None)
Quarter: 2007Q1

REPORT INFORMATION
  Report Type: 
  Country: None (occurrence: None)
  Receive Date: 20070320
  Receipt Date: 20070312
  Transmission Date: 20070707
  Serious: Yes (Hospitalization)
  Sender: FDA-Public Use
  Company Number: 238094

PATIENT
  Age: 61 Year
  Sex: Female
  Weight: 46.6 kg

DRUGS (5)
  1. MABTHERA(RITUXIMAB) CONC FOR SOLUTION FOR INFUSION [Suspect]
     Indication: B-CELL LYMPHOMA
     Dosage: 536.25 MG, INTRAVENOUS
     Route: 042
     Dates: start: 20061122
  2. CYCLOPHOSPHAMIDE [Suspect]
     Indication: B-CELL LYMPHOMA
     Dosage: 1072.5 MG, INTRAVENOUS
     Route: 042
     Dates: start: 20061122
  3. DEXRAZOXANE(DEXRAZOXANE) [Suspect]
     Indication: B-CELL LYMPHOMA
     Dosage: 1430 MG, INTRAVENOUS
     Route: 042
     Dates: start: 20061122
  4. DOXORUBICIN HCL [Suspect]
     Indication: B-CELL LYMPHOMA
     Dosage: 71.5 MG, INTRAVENOUS
     Route: 042
     Dates: start: 20061122
  5. VINCRISTINE [Suspect]
     Indication: B-CELL LYMPHOMA
     Dosage: 2 MG, INTRAVENOUS
     Route: 042
     Dates: start: 20061122

REACTIONS (2)
  - MALNUTRITION [None]
  - WEIGHT DECREASED [None]
